FAERS Safety Report 7125628-X (Version None)
Quarter: 2010Q4

REPORT INFORMATION
  Report Type: 
  Country: None (occurrence: None)
  Receive Date: 20101112
  Receipt Date: 20101105
  Transmission Date: 20110411
  Serious: Yes (Other)
  Sender: FDA-Public Use
  Company Number: TPA2010A05671

PATIENT
  Age: 63 Year
  Sex: Male
  Weight: 97.5234 kg

DRUGS (5)
  1. ULORIC [Suspect]
     Indication: GOUT
     Dosage: 40 MG, 1 IN 1 D, ORAL
     Route: 048
     Dates: start: 20100909, end: 20101004
  2. FENOFIBRATE [Concomitant]
  3. CRESTOR [Concomitant]
  4. LEVOXYL [Concomitant]
  5. LOVAZA (OMEGA 3) (FISH OIL) [Concomitant]

REACTIONS (3)
  - OTOTOXICITY [None]
  - TINNITUS [None]
  - VERTIGO [None]
